FAERS Safety Report 23763824 (Version 3)
Quarter: 2024Q3

REPORT INFORMATION
  Report Type: Spontaneous
  Country: US (occurrence: US)
  Receive Date: 20240419
  Receipt Date: 20240704
  Transmission Date: 20241017
  Serious: No
  Sender: SANOFI AVENTIS
  Company Number: US-SA-SAC20240416001091

PATIENT
  Age: 13 Year
  Sex: Male

DRUGS (9)
  1. ELOCTATE [Suspect]
     Active Substance: EFMOROCTOCOG ALFA
     Indication: Factor VIII deficiency
     Dosage: 3800 U, QW
     Route: 042
     Dates: start: 202106
  2. ELOCTATE [Suspect]
     Active Substance: EFMOROCTOCOG ALFA
     Indication: Factor VIII deficiency
     Dosage: 3800 U, QW
     Route: 042
     Dates: start: 202106
  3. ELOCTATE [Suspect]
     Active Substance: EFMOROCTOCOG ALFA
     Dosage: 3800 U, PRN (AS NEEDED)
     Route: 042
     Dates: start: 202106
  4. ELOCTATE [Suspect]
     Active Substance: EFMOROCTOCOG ALFA
     Dosage: 3800 U, PRN (AS NEEDED)
     Route: 042
     Dates: start: 202106
  5. ELOCTATE [Suspect]
     Active Substance: EFMOROCTOCOG ALFA
     Dosage: 3000 U, PRN (AS NEEDED) AND WEEKLY
     Route: 042
     Dates: start: 202106
  6. ELOCTATE [Suspect]
     Active Substance: EFMOROCTOCOG ALFA
     Dosage: 3000 U, PRN (AS NEEDED) AND WEEKLY
     Route: 042
     Dates: start: 202106
  7. ELOCTATE [Suspect]
     Active Substance: EFMOROCTOCOG ALFA
     Dosage: 800 U, PRN AND WEEKDLY
     Route: 042
     Dates: start: 202106
  8. ELOCTATE [Suspect]
     Active Substance: EFMOROCTOCOG ALFA
     Dosage: 800 U, PRN AND WEEKDLY
     Route: 042
     Dates: start: 202106
  9. SODIUM CHLORIDE [Concomitant]
     Active Substance: SODIUM CHLORIDE
     Dosage: UNK

REACTIONS (3)
  - Traumatic haemorrhage [Recovered/Resolved]
  - Spontaneous haemorrhage [Unknown]
  - Epistaxis [Recovered/Resolved]

NARRATIVE: CASE EVENT DATE: 20240403
